FAERS Safety Report 6903207-4 (Version None)
Quarter: 2010Q3

REPORT INFORMATION
  Report Type: 
  Country: None (occurrence: None)
  Receive Date: 20100803
  Receipt Date: 20080605
  Transmission Date: 20110219
  Serious: No
  Sender: FDA-Public Use
  Company Number: US-PFIZER INC-2008048775

PATIENT

DRUGS (1)
  1. LYRICA [Suspect]
     Dates: start: 20080101

REACTIONS (2)
  - ANXIETY [None]
  - BURNING SENSATION [None]
